FAERS Safety Report 10025866 (Version 2)
Quarter: 2014Q1

REPORT INFORMATION
  Report Type: Spontaneous
  Country: IT (occurrence: None)
  Receive Date: 20140314
  Receipt Date: 20140318
  Transmission Date: 20141002
  Serious: Yes (Hospitalization)
  Sender: FDA-Public Use
  Company Number: AUR-APL-2014-02685

PATIENT
  Age: 18 Year
  Sex: Female

DRUGS (2)
  1. AMOXICILLIN [Suspect]
     Indication: SINUSITIS
     Dosage: 1 DOSAGE FORMS, TOTAL
     Route: 048
     Dates: start: 20140124, end: 20140124
  2. ZERINOL [Suspect]
     Indication: SINUSITIS
     Dosage: (1 DOSAGE FORMS,1 D)
     Route: 048
     Dates: start: 20140125, end: 20140125

REACTIONS (4)
  - Generalised erythema [None]
  - Formication [None]
  - Tongue disorder [None]
  - Paraesthesia oral [None]
